FAERS Safety Report 4529522-X (Version None)
Quarter: 2004Q4

REPORT INFORMATION
  Report Type: 
  Country: None (occurrence: None)
  Receive Date: 20041214
  Receipt Date: 20041129
  Transmission Date: 20050328
  Serious: Yes (Other)
  Sender: FDA-Public Use
  Company Number: US-JNJFOC20041003217

PATIENT
  Age: 66 Year
  Sex: Female

DRUGS (7)
  1. ACETAMINOPHEN [Suspect]
     Indication: ARTHRITIS
     Dosage: 1300 MG, 1 IN 1 DAY, ORAL
     Dates: start: 20041001, end: 20041001
  2. ACETAMINOPHEN [Suspect]
     Indication: ARTHRITIS
     Dosage: 1300 MG, 1 IN 1 DAY, ORAL
     Dates: start: 20041005, end: 20041005
  3. HYDROCHLOROTHIAZIDE [Concomitant]
  4. LISINOPRIL [Concomitant]
  5. HYOSCYAMINE (HYOSCYAMINE) [Concomitant]
  6. CELEBREX [Concomitant]
  7. LIPITOR [Concomitant]

REACTIONS (10)
  - ANAPHYLACTOID REACTION [None]
  - BLOOD PRESSURE INCREASED [None]
  - BURNING SENSATION [None]
  - CHEST PAIN [None]
  - DYSPHAGIA [None]
  - FEELING HOT [None]
  - HEART RATE INCREASED [None]
  - PAIN [None]
  - TONGUE DISORDER [None]
  - TREMOR [None]
